FAERS Safety Report 17330609 (Version 1)
Quarter: 2020Q1

REPORT INFORMATION
  Report Type: Report from Study
  Country: IT (occurrence: IT)
  Receive Date: 20200128
  Receipt Date: 20200128
  Transmission Date: 20200409
  Serious: Yes (Other)
  Sender: FDA-Public Use
  Company Number: IT-PFIZER INC-2020035500

PATIENT

DRUGS (4)
  1. CARBOPLATIN. [Suspect]
     Active Substance: CARBOPLATIN
     Indication: NON-SMALL CELL LUNG CANCER
     Dosage: AUC 6, UNK, CYCLIC (4 CYCLES)
  2. SPARTALIZUMAB [Suspect]
     Active Substance: SPARTALIZUMAB
     Indication: NON-SMALL CELL LUNG CANCER
     Dosage: 300 MG, EVERY 3 WEEKS (4 CYCLES)(INITIAL DOSE)
  3. PACLITAXEL. [Suspect]
     Active Substance: PACLITAXEL
     Indication: NON-SMALL CELL LUNG CANCER
     Dosage: 200 MG/M2, CYCLIC (4 CYCLES)
  4. SPARTALIZUMAB [Suspect]
     Active Substance: SPARTALIZUMAB
     Dosage: UNK UNK, CYCLIC (MAINTENANCE)

REACTIONS (1)
  - Neutropenic colitis [Unknown]
